FAERS Safety Report 5524844-8 (Version None)
Quarter: 2007Q4

REPORT INFORMATION
  Report Type: 
  Country: None (occurrence: None)
  Receive Date: 20071116
  Receipt Date: 20071107
  Transmission Date: 20080405
  Serious: Yes (Hospitalization)
  Sender: FDA-Public Use
  Company Number: 2007JP005089

PATIENT
  Age: 57 Year
  Sex: Male

DRUGS (3)
  1. PROGRAF [Suspect]
  2. PREDNISOLONE [Suspect]
  3. AZATHIOPRINE [Suspect]

REACTIONS (3)
  - ASPERGILLOSIS [None]
  - EMPYEMA [None]
  - FUNGAL ENDOCARDITIS [None]
